FAERS Safety Report 9601342 (Version 1)
Quarter: 2013Q4

REPORT INFORMATION
  Report Type: Report from Study
  Country: ES (occurrence: ES)
  Receive Date: 20131007
  Receipt Date: 20131007
  Transmission Date: 20140711
  Serious: Yes (Hospitalization)
  Sender: FDA-Public Use
  Company Number: ES-ROCHE-1283664

PATIENT
  Age: 64 Year
  Sex: Male

DRUGS (3)
  1. RIBAVIRIN [Suspect]
     Indication: CHRONIC HEPATITIS C
     Route: 048
     Dates: start: 20130527
  2. PEG-INTERFERON ALFA 2A [Concomitant]
     Route: 065
  3. TELAPREVIR [Concomitant]

REACTIONS (2)
  - Infection in an immunocompromised host [Recovering/Resolving]
  - Pancytopenia [Recovering/Resolving]
